FAERS Safety Report 6123394-8 (Version None)
Quarter: 2009Q1

REPORT INFORMATION
  Report Type: 
  Country: None (occurrence: None)
  Receive Date: 20090318
  Receipt Date: 20090313
  Transmission Date: 20090719
  Serious: Yes (Death)
  Sender: FDA-Public Use
  Company Number: US-ABBOTT-09P-163-0562323-00

PATIENT
  Sex: Female
  Weight: 60.836 kg

DRUGS (5)
  1. HUMIRA [Suspect]
     Indication: COLITIS
     Dosage: RECEIVED LOADING DOSE ONLY; 2 PENS 06 MAR 2009 AND 2 PENS 07 MAR 2009.
     Route: 058
     Dates: start: 20090306, end: 20090312
  2. PREDNISONE TAB [Concomitant]
     Indication: COLITIS
     Route: 048
  3. DIOVAN [Concomitant]
     Indication: HYPERTENSION
     Dosage: UNKNOWN DOSE
     Route: 048
  4. HYDROCHLOROTHIAZIDE [Concomitant]
     Indication: HYPERTENSION
     Dosage: UNKNOWN DOSE
  5. ALBUTEROL [Concomitant]
     Indication: ASTHMA
     Dosage: METERED DOSES

REACTIONS (6)
  - CARDIAC ARREST [None]
  - LARGE INTESTINE PERFORATION [None]
  - MULTI-ORGAN FAILURE [None]
  - PNEUMOPERITONEUM [None]
  - RIB FRACTURE [None]
  - SEPTIC SHOCK [None]
